FAERS Safety Report 12701624 (Version 1)
Quarter: 2016Q3

REPORT INFORMATION
  Report Type: Spontaneous
  Country: US (occurrence: None)
  Receive Date: 20160830
  Receipt Date: 20160830
  Transmission Date: 20161109
  Serious: Yes (Hospitalization)
  Sender: FDA-Public Use
  Company Number: None

PATIENT
  Age: 44 Year
  Sex: Female
  Weight: 94.2 kg

DRUGS (1)
  1. SORAFENIB, 200 MG BAYER [Suspect]
     Active Substance: SORAFENIB
     Indication: BREAST CANCER METASTATIC
     Route: 048
     Dates: start: 20160816, end: 20160828

REACTIONS (5)
  - Oropharyngeal pain [None]
  - Rash papular [None]
  - Radiation skin injury [None]
  - Odynophagia [None]
  - Oedema [None]

NARRATIVE: CASE EVENT DATE: 20160822
